FAERS Safety Report 26052710 (Version 1)
Quarter: 2025Q4

REPORT INFORMATION
  Report Type: Spontaneous
  Country: US (occurrence: US)
  Receive Date: 20251117
  Receipt Date: 20251117
  Transmission Date: 20260118
  Serious: Yes (Hospitalization, Other)
  Sender: ALEXION PHARMACEUTICALS
  Company Number: US-ASTRAZENECA-202511NAM005090US

PATIENT
  Age: 77 Year
  Sex: Female
  Weight: 72 kg

DRUGS (3)
  1. FULVESTRANT [Suspect]
     Active Substance: FULVESTRANT
     Indication: Hormone receptor positive breast cancer
     Dosage: 500 MILLIGRAM, QD
     Dates: start: 20250828
  2. FULVESTRANT [Suspect]
     Active Substance: FULVESTRANT
  3. PALBOCICLIB [Suspect]
     Active Substance: PALBOCICLIB
     Indication: Hormone receptor positive breast cancer
     Dosage: 125 MILLIGRAM, QD
     Dates: start: 20250902, end: 20250923

REACTIONS (12)
  - Cerebrovascular accident [Unknown]
  - Mental disorder [Unknown]
  - Reading disorder [Unknown]
  - Blood thromboplastin [Unknown]
  - Blood glucose normal [Unknown]
  - Brain natriuretic peptide increased [Unknown]
  - Oedema [Unknown]
  - Cerebral infarction [Unknown]
  - Atrophy [Unknown]
  - Diabetic microangiopathy [Unknown]
  - Platelet count decreased [Unknown]
  - Red blood cell count decreased [Unknown]

NARRATIVE: CASE EVENT DATE: 20251022
